FAERS Safety Report 7217844-3 (Version None)
Quarter: 2011Q1

REPORT INFORMATION
  Report Type: 
  Country: None (occurrence: None)
  Receive Date: 20110110
  Receipt Date: 20060317
  Transmission Date: 20110831
  Serious: Yes (Other)
  Sender: FDA-Public Use
  Company Number: PHHY2006CA02719

PATIENT
  Sex: Female

DRUGS (3)
  1. SANDOSTATIN LAR [Suspect]
     Indication: CARCINOID TUMOUR
     Dosage: 30 MG, QMO
     Route: 030
     Dates: start: 20060101
  2. MULTIVIT [Concomitant]
  3. ATACAND [Concomitant]

REACTIONS (6)
  - HYPERTENSION [None]
  - NAUSEA [None]
  - HEPATIC PAIN [None]
  - ABDOMINAL DISTENSION [None]
  - FEELING ABNORMAL [None]
  - ABDOMINAL PAIN [None]
